FAERS Safety Report 18169339 (Version 1)
Quarter: 2020Q3

REPORT INFORMATION
  Report Type: Spontaneous
  Country: US (occurrence: US)
  Receive Date: 20200819
  Receipt Date: 20200819
  Transmission Date: 20201103
  Serious: Yes (Life-Threatening, Disabling)
  Sender: FDA-Public Use
  Company Number: None

PATIENT
  Age: 57 Year
  Sex: Female
  Weight: 72 kg

DRUGS (8)
  1. FLUOXETINE [Concomitant]
     Active Substance: FLUOXETINE HYDROCHLORIDE
  2. METOPROLOL. [Concomitant]
     Active Substance: METOPROLOL
  3. CLONAZEPAM. [Suspect]
     Active Substance: CLONAZEPAM
     Indication: ANXIETY
     Dosage: ?          QUANTITY:2 TABLET(S);?
     Route: 048
  4. ANTIHISTAMINE (XYZAL) [Concomitant]
  5. ADVIL [Concomitant]
     Active Substance: IBUPROFEN
  6. CLONAZEPAM. [Suspect]
     Active Substance: CLONAZEPAM
     Indication: DEPRESSION
     Dosage: ?          QUANTITY:2 TABLET(S);?
     Route: 048
  7. VENLAFAXINE [Suspect]
     Active Substance: VENLAFAXINE HYDROCHLORIDE
  8. ANTACID (FAMOTIDINE) [Concomitant]

REACTIONS (8)
  - Near death experience [None]
  - Feeling abnormal [None]
  - Impaired work ability [None]
  - Suicidal ideation [None]
  - Confusional state [None]
  - Fatigue [None]
  - Decreased interest [None]
  - Dementia Alzheimer^s type [None]

NARRATIVE: CASE EVENT DATE: 20200810
